FAERS Safety Report 6465644-4 (Version None)
Quarter: 2009Q4

REPORT INFORMATION
  Report Type: 
  Country: None (occurrence: None)
  Receive Date: 20091118
  Receipt Date: 20090615
  Transmission Date: 20100525
  Serious: Yes (Hospitalization)
  Sender: FDA-Public Use
  Company Number: 2009BI017816

PATIENT
  Age: 28 Year
  Sex: Female
  Weight: 108.8633 kg

DRUGS (1)
  1. TYSABRI [Suspect]
     Indication: MULTIPLE SCLEROSIS
     Dosage: 300 MG;QM;IV
     Route: 042
     Dates: start: 20090605

REACTIONS (5)
  - DIZZINESS [None]
  - PYREXIA [None]
  - VISUAL IMPAIRMENT [None]
  - VOMITING [None]
  - WHITE BLOOD CELL COUNT INCREASED [None]
